FAERS Safety Report 8445636-6 (Version None)
Quarter: 2012Q2

REPORT INFORMATION
  Report Type: 
  Country: None (occurrence: None)
  Receive Date: 20120618
  Receipt Date: 20120607
  Transmission Date: 20120825
  Serious: Yes (Hospitalization, Other)
  Sender: FDA-Public Use
  Company Number: ES-JNJFOC-20120607263

PATIENT
  Age: 51 Year
  Sex: Male

DRUGS (4)
  1. DARUNAVIR HYDRATE [Suspect]
     Indication: HIV INFECTION
     Route: 048
  2. RITONAVIR [Suspect]
     Indication: HIV INFECTION
     Route: 065
  3. RALTEGRAVIR [Suspect]
     Indication: HIV INFECTION
     Route: 065
  4. MARAVIROC [Suspect]
     Indication: HIV INFECTION
     Route: 065

REACTIONS (7)
  - PLEURAL EFFUSION [None]
  - AMYLOIDOSIS [None]
  - NEPHROTIC SYNDROME [None]
  - ASCITES [None]
  - METABOLIC ACIDOSIS [None]
  - NORMOCHROMIC NORMOCYTIC ANAEMIA [None]
  - PNEUMOCOCCAL INFECTION [None]
